FAERS Safety Report 8187095-7 (Version None)
Quarter: 2012Q1

REPORT INFORMATION
  Report Type: 
  Country: None (occurrence: None)
  Receive Date: 20120302
  Receipt Date: 20120222
  Transmission Date: 20120608
  Serious: Yes (Death, Hospitalization)
  Sender: FDA-Public Use
  Company Number: AUR-APL-2011-05570

PATIENT
  Age: 74 Year
  Sex: Male
  Weight: 70.75 kg

DRUGS (9)
  1. METOPROLOL SUCCINATE [Suspect]
     Indication: CARDIOVASCULAR EVENT PROPHYLAXIS
     Dosage: 50 MG (25 MG, 2 IN 1 D), UNKNOWN
     Dates: start: 20100902
  2. ASPIRIN [Suspect]
     Indication: PROPHYLAXIS
     Dosage: (81 MG), UNKNOWN
     Dates: start: 20100831
  3. VESICARE [Concomitant]
  4. PLAVIX [Suspect]
     Indication: CARDIOVASCULAR EVENT PROPHYLAXIS
     Dosage: (25 MG), UNKNOWN
     Dates: start: 20100902
  5. NAMENDA [Concomitant]
  6. BAPINEUZUMAB [Suspect]
     Indication: DEMENTIA ALZHEIMER'S TYPE
     Dosage: 0.0055 MG/KG (0.5 MG/KG, 1 IN 13 WK), PARENTERAL
     Route: 051
     Dates: start: 20110831, end: 20110831
  7. ARICEPT [Concomitant]
  8. FLORINEF [Concomitant]
  9. LOVASTATIN [Concomitant]

REACTIONS (9)
  - THERAPY CESSATION [None]
  - BLOOD CALCIUM DECREASED [None]
  - SUBARACHNOID HAEMORRHAGE [None]
  - INTRAVENTRICULAR HAEMORRHAGE [None]
  - ENCEPHALOMALACIA [None]
  - BRAIN OEDEMA [None]
  - BLOOD GLUCOSE INCREASED [None]
  - HAEMOGLOBIN DECREASED [None]
  - LABILE BLOOD PRESSURE [None]
